FAERS Safety Report 5650191-X (Version None)
Quarter: 2008Q1

REPORT INFORMATION
  Report Type: 
  Country: None (occurrence: None)
  Receive Date: 20080131
  Receipt Date: 20071222
  Transmission Date: 20080703
  Serious: No
  Sender: FDA-Public Use
  Company Number: US200712004803

PATIENT
  Age: 55 Year
  Sex: Female

DRUGS (11)
  1. BYETTA [Suspect]
     Indication: TYPE 2 DIABETES MELLITUS
     Route: 058
     Dates: start: 20071118, end: 20071125
  2. BYETTA [Suspect]
     Indication: TYPE 2 DIABETES MELLITUS
     Route: 058
     Dates: start: 20071101, end: 20071213
  3. BYETTA [Suspect]
     Indication: TYPE 2 DIABETES MELLITUS
     Route: 058
     Dates: start: 20071213
  4. ACTOS /USA/ (PIOGLITAZONE HYDROCHLORIDE) [Concomitant]
  5. METFORMIN HCL [Concomitant]
  6. MICARDIS /USA/ (TELMISARTAN) [Concomitant]
  7. CELEXA [Concomitant]
  8. VYTORIN [Concomitant]
  9. ASPIRIN /USA/ (ACETYLSALICYLIC ACID) [Concomitant]
  10. NAPROXEN [Concomitant]
  11. VITAMINS [Concomitant]

REACTIONS (2)
  - FLUSHING [None]
  - PERIPHERAL COLDNESS [None]
